FAERS Safety Report 9440797 (Version 3)
Quarter: 2013Q3

REPORT INFORMATION
  Report Type: Spontaneous
  Country: US (occurrence: US)
  Receive Date: 20130805
  Receipt Date: 20130903
  Transmission Date: 20140515
  Serious: Yes (Hospitalization)
  Sender: FDA-Public Use
  Company Number: US-B.I. PHARMACEUTICALS,INC./RIDGEFIELD-2013-BI-22885BP

PATIENT
  Age: 64 Year
  Sex: Female
  Weight: 76 kg

DRUGS (20)
  1. SPIRIVA [Suspect]
     Indication: CHRONIC OBSTRUCTIVE PULMONARY DISEASE
     Dosage: 18 MCG
     Route: 055
     Dates: start: 2010
  2. PROZAC [Concomitant]
     Indication: DEPRESSION
     Dosage: 60 MG
     Route: 048
  3. LISINOPRIL [Concomitant]
     Indication: HYPERTENSION
     Dosage: 5 MG
     Route: 048
  4. PERCOCET [Concomitant]
     Indication: BACK PAIN
     Dosage: DOSE PER APPLICATION: 5/325 MG;
     Route: 048
  5. PRAVASTATIN [Concomitant]
     Indication: BLOOD CHOLESTEROL INCREASED
     Dosage: 20 MG
     Route: 048
  6. ASPIRIN [Concomitant]
     Dosage: 81 MG
     Route: 048
  7. TRAZODONE [Concomitant]
     Indication: INSOMNIA
     Route: 048
  8. GABAPENTIN [Concomitant]
     Indication: MUSCLE SPASMS
     Dosage: (CAPLET)
     Route: 048
  9. LASIX [Concomitant]
     Indication: CARDIAC FAILURE CONGESTIVE
     Dosage: 120 MG
     Route: 048
  10. COUMADIN [Concomitant]
     Indication: SUPRAVENTRICULAR TACHYCARDIA
     Route: 048
  11. ACIDOPHILUS [Concomitant]
     Indication: DIVERTICULUM
     Route: 048
  12. IPATROPIUM NEBULIZER [Concomitant]
     Indication: CHRONIC OBSTRUCTIVE PULMONARY DISEASE
     Route: 055
  13. OMEPRAZOLE [Concomitant]
     Indication: GASTROOESOPHAGEAL REFLUX DISEASE
     Dosage: 20 MG
     Route: 048
  14. ALBUTEROL MDI [Concomitant]
     Indication: CHRONIC OBSTRUCTIVE PULMONARY DISEASE
     Route: 055
  15. ALBUTEROL NEBULIZER [Concomitant]
     Indication: CHRONIC OBSTRUCTIVE PULMONARY DISEASE
     Route: 055
  16. DILTIAZEM [Concomitant]
     Indication: SUPRAVENTRICULAR TACHYCARDIA
     Dosage: 180 MG
     Route: 048
  17. POTASSIUM CHLORIDE [Concomitant]
     Dosage: 30 MEQ
     Route: 048
  18. ALPRAZOLAM [Concomitant]
     Indication: PANIC ATTACK
     Dosage: 0.75 MG
     Route: 048
  19. NITROSTAT [Concomitant]
     Indication: CHEST PAIN
  20. FLEXERIL [Concomitant]
     Indication: BACK PAIN
     Route: 048

REACTIONS (9)
  - Dyspnoea [Recovered/Resolved]
  - Amnesia [Recovered/Resolved]
  - Psychotic disorder [Recovered/Resolved]
  - Dyspnoea [Recovered/Resolved]
  - Chronic obstructive pulmonary disease [Recovered/Resolved]
  - Productive cough [Recovered/Resolved]
  - Muscle spasms [Recovered/Resolved]
  - Nausea [Recovered/Resolved]
  - Clostridium difficile infection [Recovered/Resolved]
